FAERS Safety Report 6445458-1 (Version None)
Quarter: 2009Q4

REPORT INFORMATION
  Report Type: 
  Country: None (occurrence: None)
  Receive Date: 20091118
  Receipt Date: 20091021
  Transmission Date: 20100525
  Serious: Yes (Hospitalization)
  Sender: FDA-Public Use
  Company Number: FR-PFIZER INC-2009280051

PATIENT
  Sex: Female

DRUGS (12)
  1. SOLU-MEDROL [Suspect]
     Indication: LYMPHOMA
     Dosage: 100 MG, CYCLIC
     Route: 042
     Dates: start: 20090321, end: 20090716
  2. FORTUM [Suspect]
     Indication: DIARRHOEA INFECTIOUS
     Dosage: UNK
     Route: 048
     Dates: start: 20090424, end: 20090501
  3. CIFLOX [Suspect]
     Dosage: UNK
     Route: 048
     Dates: start: 20090424, end: 20090429
  4. BACTRIM DS [Suspect]
     Dosage: 3 DF, WEEKLY
     Dates: start: 20090321, end: 20090724
  5. ADRIAMYCIN PFS [Suspect]
     Indication: LYMPHOMA
     Dosage: 90 MG, CYCLIC
     Route: 042
     Dates: start: 20090321, end: 20090716
  6. ENDOXAN [Suspect]
     Indication: LYMPHOMA
     Dosage: 1.3 G, CYCLIC
     Route: 042
     Dates: start: 20090321, end: 20090716
  7. ONCOVIN [Suspect]
     Indication: LYMPHOMA
     Dosage: 2 DF, CYCLIC
     Route: 042
     Dates: start: 20090321, end: 20090716
  8. MABTHERA [Suspect]
     Indication: LYMPHOMA
     Dosage: 600 MG, CYCLIC
     Route: 042
     Dates: start: 20090323, end: 20090716
  9. ZELITREX [Concomitant]
     Dosage: 1 DF, 1X/DAY
  10. RIMIFON [Concomitant]
  11. SPECIAFOLDINE [Concomitant]
     Dosage: 4 DF, 1X/DAY
  12. NEXIUM [Concomitant]
     Dosage: 20 MG, 1X/DAY

REACTIONS (1)
  - CLOSTRIDIUM DIFFICILE COLITIS [None]
